FAERS Safety Report 25825271 (Version 3)
Quarter: 2025Q4

REPORT INFORMATION
  Report Type: Spontaneous
  Country: US (occurrence: US)
  Receive Date: 20250919
  Receipt Date: 20251008
  Transmission Date: 20260117
  Serious: No
  Sender: TEVA
  Company Number: US-TEVA-VS-3372910

PATIENT
  Age: 53 Year
  Sex: Male

DRUGS (3)
  1. HYDROXOCOBALAMIN [Suspect]
     Active Substance: HYDROXOCOBALAMIN
     Indication: Pernicious anaemia
     Dosage: FORM STRENGTH: 1000 MCG/ML, INJECTABLE SOLUTION; INJECTION VIAL 1000MCG/ML 1X30M
     Route: 030
     Dates: start: 20250906
  2. HYDROXOCOBALAMIN [Suspect]
     Active Substance: HYDROXOCOBALAMIN
     Indication: Pernicious anaemia
     Dosage: FORM STRENGTH: 1000 MCG/ML, INJECTION VIAL 1000MCG/ML 1X30M
     Route: 030
     Dates: start: 20250910
  3. CYANOCOBALAMIN [Concomitant]
     Active Substance: CYANOCOBALAMIN
     Indication: Pernicious anaemia

REACTIONS (3)
  - Drug ineffective [Unknown]
  - Therapeutic response shortened [Unknown]
  - Product temperature excursion issue [Unknown]

NARRATIVE: CASE EVENT DATE: 20250901
